FAERS Safety Report 24318900 (Version 1)
Quarter: 2024Q3

REPORT INFORMATION
  Report Type: Spontaneous
  Country: DE (occurrence: DE)
  Receive Date: 20240913
  Receipt Date: 20240913
  Transmission Date: 20241016
  Serious: Yes (Other)
  Sender: BRISTOL MYERS SQUIBB
  Company Number: DE-BRISTOL-MYERS SQUIBB COMPANY-2024-144730

PATIENT
  Age: 40 Year
  Sex: Female

DRUGS (1)
  1. ZEPOSIA [Suspect]
     Active Substance: OZANIMOD HYDROCHLORIDE
     Indication: Multiple sclerosis
     Dosage: DOSE AND STRENGTH: 0.92; UNITS: UNAVAILABLE
     Route: 048

REACTIONS (2)
  - Interstitial lung disease [Recovering/Resolving]
  - Treatment noncompliance [Unknown]
